FAERS Safety Report 25684235 (Version 2)
Quarter: 2025Q3

REPORT INFORMATION
  Report Type: Spontaneous
  Country: PR (occurrence: PR)
  Receive Date: 20250815
  Receipt Date: 20250910
  Transmission Date: 20251021
  Serious: Yes (Hospitalization)
  Sender: BRISTOL-MYERS SQUIBB COMPANY
  Company Number: PR-BRISTOL-MYERS SQUIBB COMPANY-2025-111649

PATIENT
  Age: 57 Year
  Sex: Female
  Weight: 74.84 kg

DRUGS (2)
  1. LENALIDOMIDE [Suspect]
     Active Substance: LENALIDOMIDE
     Indication: Plasma cell myeloma
     Dates: start: 20230923
  2. ENTECAVIR [Concomitant]
     Active Substance: ENTECAVIR
     Indication: Product used for unknown indication

REACTIONS (2)
  - Haemoglobin decreased [Recovered/Resolved]
  - Platelet count decreased [Recovered/Resolved]

NARRATIVE: CASE EVENT DATE: 20250801
